FAERS Safety Report 4909613-1 (Version None)
Quarter: 2006Q1

REPORT INFORMATION
  Report Type: 
  Country: None (occurrence: None)
  Receive Date: 20060213
  Receipt Date: 20050818
  Transmission Date: 20060701
  Serious: Yes (Hospitalization)
  Sender: FDA-Public Use
  Company Number: US-MERCK-0508USA03303

PATIENT
  Age: 77 Year
  Sex: Male

DRUGS (2)
  1. VIOXX [Suspect]
     Route: 048
  2. LISINOPRIL [Concomitant]
     Route: 065

REACTIONS (16)
  - ACUTE MYOCARDIAL INFARCTION [None]
  - ADHESION [None]
  - ANAEMIA [None]
  - ANXIETY [None]
  - BASAL CELL CARCINOMA [None]
  - CEREBROVASCULAR ACCIDENT [None]
  - COLOSTOMY [None]
  - CORONARY ARTERY DISEASE [None]
  - HAEMORRHOIDS [None]
  - HERNIA REPAIR [None]
  - HYPERTENSION [None]
  - HYPOTENSION [None]
  - PAIN [None]
  - PROCEDURAL HYPOTENSION [None]
  - SIGMOIDECTOMY [None]
  - SMALL INTESTINAL OBSTRUCTION [None]
